FAERS Safety Report 4665444-1 (Version None)
Quarter: 2005Q2

REPORT INFORMATION
  Report Type: 
  Country: None (occurrence: None)
  Receive Date: 20050518
  Receipt Date: 20050518
  Transmission Date: 20051028
  Serious: Yes (Disabling, Other)
  Sender: FDA-Public Use
  Company Number: None

PATIENT
  Age: 25 Year
  Sex: Male
  Weight: 95.2554 kg

DRUGS (1)
  1. CIPROFLOXACIN [Suspect]
     Dosage: 500MG   2X DAY PILL
     Route: 048

REACTIONS (11)
  - ACTIVITIES OF DAILY LIVING IMPAIRED [None]
  - CARTILAGE INJURY [None]
  - DEPRESSION [None]
  - DRUG INEFFECTIVE [None]
  - FIBROMYALGIA [None]
  - HYPOAESTHESIA [None]
  - IMPAIRED WORK ABILITY [None]
  - LOSS OF EMPLOYMENT [None]
  - MUSCLE INJURY [None]
  - NERVE INJURY [None]
  - WEIGHT DECREASED [None]
